FAERS Safety Report 6529750-8 (Version None)
Quarter: 2010Q1

REPORT INFORMATION
  Report Type: 
  Country: None (occurrence: None)
  Receive Date: 20100107
  Receipt Date: 20100103
  Transmission Date: 20100710
  Serious: Yes (Hospitalization)
  Sender: FDA-Public Use
  Company Number: AU-BRISTOL-MYERS SQUIBB COMPANY-14919658

PATIENT
  Age: 79 Year
  Sex: Male

DRUGS (14)
  1. CARBOPLATIN [Suspect]
     Indication: LUNG NEOPLASM MALIGNANT
     Dosage: 6 DOSAGEFORM = 6 AUC LAST DOSE PRIOR TO EVENT ON 11DEC09 WAS 4.5 AUC
     Route: 042
     Dates: start: 20090605
  2. PACLITAXEL [Suspect]
     Indication: LUNG NEOPLASM MALIGNANT
     Dosage: LAST DOSE PRIOR TO EVENT ON 18DEC09 WAS 75MG/M2
     Route: 042
     Dates: start: 20090605
  3. DIGOXIN [Concomitant]
     Indication: ATRIAL FIBRILLATION
     Dates: start: 20030101
  4. ATENOLOL [Concomitant]
     Indication: HYPERTENSION
     Dates: start: 20070101
  5. WARFARIN SODIUM [Concomitant]
     Indication: ANTICOAGULANT THERAPY
     Dates: start: 20030101
  6. LATANOPROST [Concomitant]
     Indication: GLAUCOMA
     Dates: start: 20050101
  7. LACTULOSE [Concomitant]
     Indication: CONSTIPATION
     Dates: start: 20090606
  8. FLUTICASONE PROPIONATE [Concomitant]
     Indication: CHRONIC OBSTRUCTIVE PULMONARY DISEASE
     Dates: start: 20030101
  9. LOPERAMIDE [Concomitant]
     Indication: DIARRHOEA
     Dates: start: 20090607
  10. TEMAZEPAM [Concomitant]
     Indication: ANXIETY
     Dates: start: 20090731
  11. NICOTINE [Concomitant]
     Indication: SMOKING CESSATION THERAPY
     Dosage: NICOTINE GUM
     Dates: start: 20090731
  12. VASELINE [Concomitant]
     Indication: EPISTAXIS
     Dates: start: 20090717
  13. IPRATROPIUM BROMIDE [Concomitant]
     Indication: CHRONIC OBSTRUCTIVE PULMONARY DISEASE
     Dates: start: 20030101
  14. SALBUTAMOL SULFATE [Concomitant]
     Indication: CHRONIC OBSTRUCTIVE PULMONARY DISEASE
     Dates: start: 20030101

REACTIONS (1)
  - ACUTE PULMONARY OEDEMA [None]
